FAERS Safety Report 4886178-4 (Version None)
Quarter: 2006Q1

REPORT INFORMATION
  Report Type: 
  Country: None (occurrence: None)
  Receive Date: 20060120
  Receipt Date: 20060113
  Transmission Date: 20060701
  Serious: Yes (Life-Threatening)
  Sender: FDA-Public Use
  Company Number: FR-GLAXOSMITHKLINE-B0406852A

PATIENT
  Age: 41 Year
  Sex: Male

DRUGS (5)
  1. AUGMENTIN '125' [Suspect]
     Route: 042
     Dates: end: 20050905
  2. TRACRIUM [Concomitant]
     Route: 042
     Dates: end: 20050905
  3. CELOCURINE [Concomitant]
     Route: 042
     Dates: end: 20050905
  4. PENTOTHAL [Concomitant]
     Route: 042
     Dates: end: 20050905
  5. SUFENTA [Concomitant]
     Route: 042
     Dates: end: 20050905

REACTIONS (7)
  - ANAPHYLACTOID REACTION [None]
  - CONNECTIVE TISSUE DISORDER [None]
  - GENERALISED ERYTHEMA [None]
  - HYPERSENSITIVITY [None]
  - HYPOTENSION [None]
  - OXYGEN SATURATION DECREASED [None]
  - TACHYCARDIA [None]
